FAERS Safety Report 15563477 (Version 4)
Quarter: 2018Q4

REPORT INFORMATION
  Report Type: Spontaneous
  Country: US (occurrence: US)
  Receive Date: 20181029
  Receipt Date: 20181112
  Transmission Date: 20190205
  Serious: Yes (Hospitalization, Other)
  Sender: FDA-Public Use
  Company Number: US-PFIZER INC-2018433848

PATIENT
  Sex: Female

DRUGS (1)
  1. LEVOPHED [Suspect]
     Active Substance: NOREPINEPHRINE BITARTRATE
     Dosage: UNK

REACTIONS (1)
  - Extremity necrosis [Unknown]
